FAERS Safety Report 7824812-7 (Version None)
Quarter: 2011Q4

REPORT INFORMATION
  Report Type: 
  Country: None (occurrence: None)
  Receive Date: 20111019
  Receipt Date: 20110211
  Transmission Date: 20120403
  Serious: Yes (Hospitalization)
  Sender: FDA-Public Use
  Company Number: US-BRISTOL-MYERS SQUIBB COMPANY-15522774

PATIENT
  Age: 82 Year
  Sex: Female
  Weight: 41 kg

DRUGS (3)
  1. ASPIRIN [Concomitant]
  2. AVALIDE [Suspect]
     Dosage: 1DF:300/12.5 UNIT NOS
  3. POTASSIUM [Concomitant]

REACTIONS (4)
  - BLOOD PRESSURE FLUCTUATION [None]
  - ABASIA [None]
  - MEMORY IMPAIRMENT [None]
  - LOSS OF CONSCIOUSNESS [None]
